FAERS Safety Report 8177797-0 (Version None)
Quarter: 2012Q1

REPORT INFORMATION
  Report Type: 
  Country: None (occurrence: None)
  Receive Date: 20120301
  Receipt Date: 20120216
  Transmission Date: 20120608
  Serious: Yes (Other)
  Sender: FDA-Public Use
  Company Number: US-MYLANLABS-2012S1003766

PATIENT
  Age: 67 Year
  Sex: Female
  Weight: 93 kg

DRUGS (18)
  1. ALBUTEROL [Concomitant]
     Dosage: AS NEEDED
     Route: 055
  2. PHENAZOPYRIDINE HCL TAB [Concomitant]
     Dosage: AS NEEDED
     Route: 065
  3. BREVA [Concomitant]
     Dosage: TWO INHALATIONS EVERY 6H
     Route: 055
  4. OMEPRAZOLE [Concomitant]
     Dosage: 20MG DAILY
     Route: 065
  5. PIOGLITAZONE [Concomitant]
     Dosage: 15MG DAILY
     Route: 065
  6. METOCLOPRAMIDE [Concomitant]
     Dosage: 10MG DAILY IF NEEDED
     Route: 065
  7. CEFTRIAXONE [Interacting]
     Indication: URINARY TRACT INFECTION
     Route: 030
     Dates: start: 20100501
  8. CITALOPRAM HYDROBROMIDE [Concomitant]
     Dosage: 40MG DAILY
     Route: 065
  9. GEMFIBROZIL [Concomitant]
     Route: 065
  10. LEVOTHYROXINE SODIUM [Concomitant]
     Dosage: 100MICROG DAILY
     Route: 065
  11. SIMVASTATIN [Concomitant]
     Dosage: 20MG DAILY
     Route: 065
  12. SOTALOL HCL [Concomitant]
     Dosage: 80MG DAILY
     Route: 065
  13. FUROSEMIDE [Concomitant]
     Dosage: 40MG DAILY
     Route: 065
  14. WARFARIN SODIUM [Suspect]
     Indication: ANTICOAGULANT THERAPY
     Dosage: INITIAL DOSAGE NOT STATED; THEN RECEIVING 52.5-54.5MG WEEKLY 4-5WK PRIOR TO ADR
     Route: 065
     Dates: start: 20020101
  15. WARFARIN SODIUM [Interacting]
     Dosage: 52.5-54.5MG WEEKLY 4-5WK PRIOR TO ADR
     Route: 065
     Dates: start: 20020101
  16. METFORMIN HCL [Concomitant]
     Route: 065
  17. POTASSIUM CHLORIDE [Concomitant]
     Route: 065
  18. CEFUROXIME AXETIL [Concomitant]
     Route: 065

REACTIONS (2)
  - INTERNATIONAL NORMALISED RATIO INCREASED [None]
  - DRUG INTERACTION [None]
